FAERS Safety Report 20772256 (Version 1)
Quarter: 2022Q2

REPORT INFORMATION
  Report Type: Spontaneous
  Country: IN (occurrence: IN)
  Receive Date: 20220502
  Receipt Date: 20220502
  Transmission Date: 20220721
  Serious: Yes (Hospitalization)
  Sender: FDA-Public Use
  Company Number: IN-LUPIN PHARMACEUTICALS INC.-2022-06285

PATIENT
  Age: 84 Year
  Sex: Female

DRUGS (11)
  1. BIMATOPROST [Suspect]
     Active Substance: BIMATOPROST
     Indication: Glaucoma
     Dosage: UNK
     Route: 065
  2. BIMATOPROST [Suspect]
     Active Substance: BIMATOPROST
     Dosage: UNK BIMATOPROST PRESERVATIVE FREE LE
     Route: 065
  3. BIMATOPROST [Suspect]
     Active Substance: BIMATOPROST
     Dosage: UNK LE ONLY
     Route: 065
  4. TIMOLOL [Suspect]
     Active Substance: TIMOLOL
     Indication: Glaucoma
     Dosage: UNK
     Route: 065
  5. LATANOPROST [Suspect]
     Active Substance: LATANOPROST
     Indication: Glaucoma
     Dosage: UNK
     Route: 065
  6. BIMATOPROST\TIMOLOL [Suspect]
     Active Substance: BIMATOPROST\TIMOLOL
     Indication: Glaucoma
     Dosage: UNK
     Route: 065
  7. BIMATOPROST\TIMOLOL [Suspect]
     Active Substance: BIMATOPROST\TIMOLOL
     Dosage: UNK LE ONLY
     Route: 065
     Dates: start: 2008, end: 2014
  8. BRINZOLAMIDE [Suspect]
     Active Substance: BRINZOLAMIDE
     Indication: Glaucoma
     Dosage: UNK
     Route: 065
     Dates: start: 2008, end: 2014
  9. BRIMONIDINE [Suspect]
     Active Substance: BRIMONIDINE TARTRATE
     Indication: Glaucoma
     Dosage: UNK LE ONLY
     Route: 065
     Dates: start: 2008, end: 2014
  10. BRINZOLAMIDE\TIMOLOL [Suspect]
     Active Substance: BRINZOLAMIDE\TIMOLOL
     Indication: Glaucoma
     Dosage: UNK
     Route: 065
     Dates: start: 2008, end: 2014
  11. DORZOLAMIDE\TIMOLOL [Suspect]
     Active Substance: DORZOLAMIDE\TIMOLOL
     Indication: Glaucoma
     Dosage: UNK
     Route: 065

REACTIONS (1)
  - Conjunctival scar [Recovering/Resolving]

NARRATIVE: CASE EVENT DATE: 20160101
